FAERS Safety Report 4910352-1 (Version None)
Quarter: 2006Q1

REPORT INFORMATION
  Report Type: 
  Country: None (occurrence: None)
  Receive Date: 20060209
  Receipt Date: 20060201
  Transmission Date: 20060701
  Serious: Yes (Life-Threatening, Hospitalization, Other)
  Sender: FDA-Public Use
  Company Number: 2006-DE-00535GD

PATIENT
  Age: 8 Year
  Sex: Male

DRUGS (6)
  1. SALBUTAMOL (SALBUTAMOL) [Suspect]
     Indication: LOWER RESPIRATORY TRACT INFECTION
     Dosage: IH
     Route: 055
  2. PREDNISONE [Suspect]
     Indication: BRONCHOPULMONARY ASPERGILLOSIS ALLERGIC
     Dosage: 2 MG/KG, PO
     Route: 048
  3. PREDNISONE [Suspect]
     Indication: LOWER RESPIRATORY TRACT INFECTION
     Dosage: 2 MG/KG, PO
     Route: 048
  4. FLUCLOXACILLIN (FLUCLOXACILLIN) [Suspect]
     Indication: LOWER RESPIRATORY TRACT INFECTION
     Dosage: IV
     Route: 042
  5. CEFOTAXIME SODIUM [Suspect]
     Indication: LOWER RESPIRATORY TRACT INFECTION
     Dosage: IV
     Route: 042
  6. ROXITHROMYCIN (ROXITHROMYCIN) [Suspect]
     Indication: LOWER RESPIRATORY TRACT INFECTION
     Dosage: PO
     Route: 048

REACTIONS (16)
  - BLOOD BICARBONATE INCREASED [None]
  - BLOOD PH DECREASED [None]
  - BRONCHOPULMONARY ASPERGILLOSIS ALLERGIC [None]
  - CUSHINGOID [None]
  - GENERAL PHYSICAL HEALTH DETERIORATION [None]
  - HYPERTENSION [None]
  - LEUKOCYTOSIS [None]
  - LOWER RESPIRATORY TRACT INFECTION [None]
  - PCO2 INCREASED [None]
  - PNEUMOMEDIASTINUM [None]
  - PNEUMONIA MYCOPLASMAL [None]
  - PO2 DECREASED [None]
  - RESPIRATORY DEPRESSION [None]
  - SUBCUTANEOUS EMPHYSEMA [None]
  - VIRAL INFECTION [None]
  - WEIGHT INCREASED [None]
